FAERS Safety Report 16127590 (Version 1)
Quarter: 2019Q1

REPORT INFORMATION
  Report Type: Spontaneous
  Country: US (occurrence: US)
  Receive Date: 20190328
  Receipt Date: 20190328
  Transmission Date: 20190418
  Serious: No
  Sender: FDA-Public Use
  Company Number: US-PFIZER INC-2019131747

PATIENT

DRUGS (5)
  1. FLUOXETINE [Suspect]
     Active Substance: FLUOXETINE HYDROCHLORIDE
     Dosage: 40 MG, UNK
  2. TOUJEO [Suspect]
     Active Substance: INSULIN GLARGINE
     Dosage: UNK, (TOUJEO MAX 30 UNITS)
  3. LYRICA [Suspect]
     Active Substance: PREGABALIN
     Dosage: 50 MG, UNK
  4. TAMSULOSIN [Suspect]
     Active Substance: TAMSULOSIN
     Dosage: 4 MG, UNK
  5. TRAJENTA [Suspect]
     Active Substance: LINAGLIPTIN
     Dosage: 5 MG, UNK

REACTIONS (1)
  - Drug hypersensitivity [Unknown]
